FAERS Safety Report 6491603-1 (Version None)
Quarter: 2009Q4

REPORT INFORMATION
  Report Type: 
  Country: None (occurrence: None)
  Receive Date: 20091208
  Receipt Date: 20091204
  Transmission Date: 20100525
  Serious: Yes (Death, Hospitalization)
  Sender: FDA-Public Use
  Company Number: SPV1-2009-02451

PATIENT
  Age: 56 Year
  Sex: Female
  Weight: 56 kg

DRUGS (17)
  1. FOSRENOL [Suspect]
     Indication: HYPERPHOSPHATAEMIA
     Dosage: ORAL
     Route: 048
  2. HECTOROL [Concomitant]
  3. VENOFER [Concomitant]
  4. LYRICA [Concomitant]
  5. LORAZEPAM [Concomitant]
  6. TYLENOL /00020001/ (PARACETAMOL) [Concomitant]
  7. EPOETIN (EPOTEIN ALFA) [Concomitant]
  8. TUMS E-X (CALCIUM CARBONATE) [Concomitant]
  9. ZOLOFT [Concomitant]
  10. LORTAB [Concomitant]
  11. METOPROLOL (METOPROLOL) [Concomitant]
  12. MIDODRINE HYDROCHLORIDE [Concomitant]
  13. COUMADIN [Concomitant]
  14. FOLIC ACID [Concomitant]
  15. PROTONIC /01263201/ (PANTOPRAZOLE) [Concomitant]
  16. RENAL CAPS [Concomitant]
  17. PREDNISONE [Concomitant]

REACTIONS (1)
  - HOSPITALISATION [None]
